FAERS Safety Report 9964098 (Version 1)
Quarter: 2014Q1

REPORT INFORMATION
  Report Type: Spontaneous
  Country: US (occurrence: US)
  Receive Date: 20140305
  Receipt Date: 20140305
  Transmission Date: 20141002
  Serious: Yes (Other)
  Sender: FDA-Public Use
  Company Number: US-BAYER-2014-029872

PATIENT
  Age: 61 Year
  Sex: Female

DRUGS (18)
  1. BAYER GENUINE ASPIRIN ORIGINAL STRENGTH [Suspect]
     Dosage: UNK
  2. POTASSIUM CHLORIDE [Concomitant]
     Dosage: 1 DF, QD
     Route: 048
  3. PSEUDOEPHEDRINE HYDROCHLORIDE [Concomitant]
     Dosage: 1 DF, QD
     Route: 048
  4. SUMATRIPTAN SUCCINATE [Concomitant]
     Indication: HEADACHE
     Dosage: 1 DF, PRN
     Route: 060
  5. OXYCODONE [Concomitant]
     Indication: PAIN
     Dosage: 1 DF, PRN
     Route: 048
  6. SKELAXIN [Concomitant]
     Dosage: Q1 DF, QID
     Route: 048
  7. PRAMIPEXOLE [Concomitant]
     Dosage: 1 DF, QID
     Route: 048
  8. LYRICA [Concomitant]
     Dosage: 1 DF, QID
     Route: 048
  9. MUPIROCIN [Concomitant]
     Dosage: UNK UNK, PRN
     Route: 061
  10. XANAX [Concomitant]
     Dosage: 1 DF, QID
  11. VITAMIN B12 NOS [Concomitant]
     Dosage: UNK UNK, OW
     Route: 030
  12. AMITRIPTYLINE [Concomitant]
     Dosage: 1 DF, QD
     Route: 048
  13. BACTRIM [Concomitant]
     Route: 048
  14. DRISDOL [Concomitant]
     Dosage: 1 DF, OW
  15. FEOSOL [Concomitant]
     Dosage: 1 DF, QD
     Route: 048
  16. LASIX [Concomitant]
     Dosage: 1 DF, BID
     Route: 048
  17. LIDODERM [Concomitant]
     Dosage: 1 TOP QD
  18. NEXIUM [Concomitant]
     Dosage: 1 DF, QD
     Route: 048

REACTIONS (2)
  - Gastrointestinal haemorrhage [None]
  - Drug hypersensitivity [None]
